FAERS Safety Report 8485436-4 (Version None)
Quarter: 2012Q3

REPORT INFORMATION
  Report Type: 
  Country: None (occurrence: None)
  Receive Date: 20120703
  Receipt Date: 20120619
  Transmission Date: 20120928
  Serious: Yes (Hospitalization)
  Sender: FDA-Public Use
  Company Number: ES-CELGENEUS-144-50794-12062736

PATIENT
  Age: 60 Year
  Sex: Male

DRUGS (3)
  1. VIDAZA [Suspect]
     Route: 065
     Dates: start: 20110810
  2. RED BLOOD CELLS [Concomitant]
     Route: 065
     Dates: start: 20110810, end: 20120131
  3. VIDAZA [Suspect]
     Route: 065
     Dates: end: 20120530

REACTIONS (1)
  - HAEMATOTOXICITY [None]
